FAERS Safety Report 6613239-1 (Version None)
Quarter: 2010Q1

REPORT INFORMATION
  Report Type: 
  Country: None (occurrence: None)
  Receive Date: 20100304
  Receipt Date: 20100225
  Transmission Date: 20100710
  Serious: Yes (Other)
  Sender: FDA-Public Use
  Company Number: DE-B.I. PHARMACEUTICALS,INC./RIDGEFIELD-2010-DE-01204DE

PATIENT
  Sex: Male
  Weight: 8 kg

DRUGS (3)
  1. ATROVENT [Suspect]
     Indication: BRONCHITIS
     Dosage: 30 PUF
     Route: 055
  2. PULMICORT [Concomitant]
  3. CEPHACLOR [Concomitant]

REACTIONS (5)
  - HAEMOLYSIS [None]
  - IRON DEFICIENCY [None]
  - OVERDOSE [None]
  - PALLOR [None]
  - RED BLOOD CELL ABNORMALITY [None]
